FAERS Safety Report 6082617-4 (Version None)
Quarter: 2009Q1

REPORT INFORMATION
  Report Type: 
  Country: None (occurrence: None)
  Receive Date: 20090218
  Receipt Date: 20090206
  Transmission Date: 20090719
  Serious: Yes (Hospitalization)
  Sender: FDA-Public Use
  Company Number: FR-PFIZER INC-2009164610

PATIENT

DRUGS (12)
  1. DILTIAZEM HCL [Interacting]
     Indication: HYPERTENSION
     Dosage: 300 MG, 1X/DAY
     Route: 048
     Dates: end: 20080520
  2. ZOXAN [Suspect]
     Indication: BENIGN PROSTATIC HYPERPLASIA
     Dosage: 4 MG, 1X/DAY
     Route: 048
     Dates: end: 20080519
  3. CORDARONE [Interacting]
     Indication: ARRHYTHMIA
     Dosage: 200 MG, 1X/DAY
     Route: 048
     Dates: end: 20080519
  4. RILMENIDINE [Suspect]
     Dosage: 1 MG, 1X/DAY
     Route: 048
     Dates: end: 20080521
  5. NICERGOLINE [Suspect]
     Indication: MENTAL IMPAIRMENT
     Dosage: 3 DF, 1X/DAY
     Route: 048
     Dates: end: 20080519
  6. FORTZAAR [Interacting]
     Indication: HYPERTENSION
     Dosage: 1 DF, 1X/DAY
     Route: 048
     Dates: end: 20080519
  7. MONICOR L.P. [Concomitant]
     Indication: PROPHYLAXIS
     Dosage: 40 MG, 2X/DAY
     Route: 048
     Dates: end: 20080519
  8. BROMAZEPAM [Concomitant]
     Indication: ANXIETY
     Dosage: UNK
     Route: 048
     Dates: end: 20080528
  9. KARDEGIC [Concomitant]
     Dosage: UNK
  10. PHENOBARBITAL [Concomitant]
     Dosage: UNK
  11. ALLOPURINOL [Concomitant]
     Dosage: UNK
     Route: 048
  12. TAHOR [Concomitant]
     Dosage: UNK
     Route: 048

REACTIONS (4)
  - BALANCE DISORDER [None]
  - BRADYCARDIA [None]
  - CONFUSIONAL STATE [None]
  - DRUG INTERACTION [None]
